FAERS Safety Report 9174615 (Version 1)
Quarter: 2013Q1

REPORT INFORMATION
  Report Type: Spontaneous
  Country: US (occurrence: None)
  Receive Date: 20130313
  Receipt Date: 20130313
  Transmission Date: 20140127
  Serious: Yes (Other)
  Sender: FDA-Public Use
  Company Number: JPI-P-030351

PATIENT
  Age: 27 Year
  Sex: Female
  Weight: 58.97 kg

DRUGS (1)
  1. XYREM (500 MILLIGRAM/MILLILITERS, SOLUTION) (SODIUM OXYBATE) [Suspect]
     Indication: CATAPLEXY
     Dosage: 9GM (4.5.GM, IN
     Route: 048
     Dates: start: 201210

REACTIONS (5)
  - Unevaluable event [None]
  - Emotional disorder [None]
  - Fatigue [None]
  - Somnolence [None]
  - Victim of spousal abuse [None]
